FAERS Safety Report 9184732 (Version 1)
Quarter: 2013Q1

REPORT INFORMATION
  Report Type: Spontaneous
  Country: SE (occurrence: SE)
  Receive Date: 20130324
  Receipt Date: 20130324
  Transmission Date: 20140127
  Serious: Yes (Other)
  Sender: FDA-Public Use
  Company Number: SE-ROCHE-1203539

PATIENT
  Age: 75 Year
  Sex: Female

DRUGS (2)
  1. LUCENTIS [Suspect]
     Indication: MACULAR DEGENERATION
     Route: 050
  2. TROMBYL [Concomitant]
     Indication: TRANSIENT ISCHAEMIC ATTACK

REACTIONS (2)
  - Retinal artery thrombosis [Not Recovered/Not Resolved]
  - Headache [Unknown]
